FAERS Safety Report 12301485 (Version 1)
Quarter: 2016Q2

REPORT INFORMATION
  Report Type: Spontaneous
  Country: US (occurrence: US)
  Receive Date: 20160425
  Receipt Date: 20160425
  Transmission Date: 20160815
  Serious: Yes (Other)
  Sender: FDA-Public Use
  Company Number: US-ASTELLAS-2015US018584

PATIENT
  Age: 89 Year
  Sex: Female

DRUGS (1)
  1. LEXISCAN [Suspect]
     Active Substance: REGADENOSON
     Indication: CARDIAC FAILURE CONGESTIVE
     Dosage: ADMINISTERED OVER 10 SECONDS
     Route: 065

REACTIONS (8)
  - Malaise [Recovering/Resolving]
  - Supraventricular extrasystoles [Recovering/Resolving]
  - Ventricular extrasystoles [Recovering/Resolving]
  - Tremor [Recovering/Resolving]
  - Off label use [Unknown]
  - Supraventricular tachycardia [Recovering/Resolving]
  - Atrial fibrillation [Recovering/Resolving]
  - Chills [Recovering/Resolving]
